FAERS Safety Report 4597249-4 (Version None)
Quarter: 2005Q1

REPORT INFORMATION
  Report Type: 
  Country: None (occurrence: None)
  Receive Date: 20050303
  Receipt Date: 20050222
  Transmission Date: 20050727
  Serious: Yes (Hospitalization)
  Sender: FDA-Public Use
  Company Number: US-KINGPHARMUSA00001-K200500260

PATIENT
  Age: 75 Year
  Sex: Female

DRUGS (4)
  1. ALTACE [Suspect]
     Indication: ESSENTIAL HYPERTENSION
     Dosage: 2.5 MG, QD
     Route: 048
     Dates: start: 20041101, end: 20041204
  2. PAXIL [Suspect]
     Indication: DEPRESSION
     Dosage: 10 MG, QD
     Route: 048
     Dates: start: 20041101, end: 20041206
  3. FORLAX [Concomitant]
  4. ACTRAPID HUMAN [Concomitant]

REACTIONS (4)
  - DEHYDRATION [None]
  - MUCOSAL DRYNESS [None]
  - SKIN TURGOR DECREASED [None]
  - THROMBOCYTOPENIA [None]
